FAERS Safety Report 25641713 (Version 2)
Quarter: 2025Q3

REPORT INFORMATION
  Report Type: Spontaneous
  Country: CA (occurrence: CA)
  Receive Date: 20250804
  Receipt Date: 20250814
  Transmission Date: 20251021
  Serious: Yes (Other)
  Sender: ELI LILLY AND COMPANY
  Company Number: CA-ELI_LILLY_AND_COMPANY-CA202507023327

PATIENT
  Age: 60 Year
  Sex: Female
  Weight: 61.6 kg

DRUGS (2)
  1. VERZENIO [Suspect]
     Active Substance: ABEMACICLIB
     Indication: Breast cancer
     Dosage: 150 MG, BID
     Route: 048
     Dates: start: 202411, end: 202504
  2. VERZENIO [Suspect]
     Active Substance: ABEMACICLIB
     Indication: Adjuvant therapy

REACTIONS (1)
  - Radiation pneumonitis [Recovering/Resolving]
